FAERS Safety Report 7650682-6 (Version None)
Quarter: 2011Q3

REPORT INFORMATION
  Report Type: 
  Country: None (occurrence: None)
  Receive Date: 20110802
  Receipt Date: 20110721
  Transmission Date: 20111222
  Serious: Yes (Hospitalization)
  Sender: FDA-Public Use
  Company Number: SG-ELI_LILLY_AND_COMPANY-SG201107005756

PATIENT
  Sex: Female
  Weight: 39.6 kg

DRUGS (6)
  1. GEMCITABINE HYDROCHLORIDE [Suspect]
     Indication: NON-SMALL CELL LUNG CANCER STAGE IV
     Dosage: 1675 MG, OTHER
     Dates: start: 20110714
  2. CISPLATIN [Suspect]
     Indication: NON-SMALL CELL LUNG CANCER STAGE IV
     Dosage: 101 MG, OTHER
     Dates: start: 20110714
  3. SPAN-K [Concomitant]
     Dosage: 600 MG, BID
     Route: 048
     Dates: start: 20110711
  4. ONDANSERTRON HYDROCHLORIDE [Concomitant]
     Dosage: 8 MG, BID
     Dates: start: 20110714
  5. KETOTOP [Concomitant]
     Dosage: UNK, BID
     Route: 062
     Dates: start: 20110711
  6. DEXAMETHASONE [Concomitant]
     Dosage: 4 MG, BID
     Dates: start: 20110714

REACTIONS (1)
  - DEHYDRATION [None]
